FAERS Safety Report 16275083 (Version 4)
Quarter: 2019Q3

REPORT INFORMATION
  Report Type: Report from Study
  Country: US (occurrence: US)
  Receive Date: 20190504
  Receipt Date: 20190922
  Transmission Date: 20191004
  Serious: Yes (Other)
  Sender: FDA-Public Use
  Company Number: PHEH2019US018010

PATIENT
  Sex: Female

DRUGS (1)
  1. ENTRESTO [Suspect]
     Active Substance: SACUBITRIL\VALSARTAN
     Indication: CARDIAC FAILURE CONGESTIVE
     Dosage: UNK
     Route: 048

REACTIONS (10)
  - Drug ineffective [Unknown]
  - Cardiomegaly [Unknown]
  - Dyspnoea [Unknown]
  - Cardiac disorder [Unknown]
  - Ascites [Unknown]
  - Cardiac valve disease [Unknown]
  - Weight increased [Unknown]
  - Myocardial hypoxia [Unknown]
  - Asthenia [Unknown]
  - Blood sodium decreased [Unknown]
